FAERS Safety Report 6704637-6 (Version None)
Quarter: 2010Q2

REPORT INFORMATION
  Report Type: 
  Country: None (occurrence: None)
  Receive Date: 20100430
  Receipt Date: 20100420
  Transmission Date: 20101027
  Serious: Yes (Hospitalization)
  Sender: FDA-Public Use
  Company Number: JP-AMGEN-US352036

PATIENT
  Sex: Male
  Weight: 70 kg

DRUGS (10)
  1. ENBREL [Suspect]
     Indication: RHEUMATOID ARTHRITIS
     Route: 058
     Dates: start: 20090115, end: 20090602
  2. CELECOXIB [Suspect]
     Indication: PAIN
     Route: 048
     Dates: start: 20090511, end: 20090520
  3. FLUITRAN [Concomitant]
     Indication: HYPERTENSION
     Route: 048
     Dates: end: 20090602
  4. METHYCOBAL [Concomitant]
     Route: 048
  5. BROTIZOLAM [Concomitant]
     Route: 048
  6. AMARYL [Concomitant]
     Route: 048
  7. PANALDINE [Concomitant]
     Indication: CEREBRAL INFARCTION
     Route: 048
     Dates: end: 20090528
  8. FAMOTIDINE [Concomitant]
     Route: 048
  9. OLMESARTAN MEDOXOMIL [Concomitant]
     Indication: HYPERTENSION
     Route: 048
     Dates: end: 20090605
  10. SELBEX [Concomitant]
     Route: 048

REACTIONS (2)
  - HEPATIC FUNCTION ABNORMAL [None]
  - SYSTEMIC LUPUS ERYTHEMATOSUS [None]
